FAERS Safety Report 16744476 (Version 2)
Quarter: 2019Q3

REPORT INFORMATION
  Report Type: Spontaneous
  Country: IT (occurrence: IT)
  Receive Date: 20190827
  Receipt Date: 20190831
  Transmission Date: 20191005
  Serious: Yes (Life-Threatening, Hospitalization, Other)
  Sender: FDA-Public Use
  Company Number: IT-AUROBINDO-AUR-APL-2019-055342

PATIENT

DRUGS (3)
  1. BISOPROLOL [Suspect]
     Active Substance: BISOPROLOL
     Indication: HYPERTENSION
     Dosage: 2.5 MILLIGRAM, ONCE A DAY
     Route: 048
  2. GLYCERYL TRINITRATE [Suspect]
     Active Substance: NITROGLYCERIN
     Indication: PULMONARY OEDEMA
     Dosage: UNK, INCREASED NITRATE INFUSION
     Route: 042
  3. GLYCERYL TRINITRATE [Suspect]
     Active Substance: NITROGLYCERIN
     Indication: STRESS CARDIOMYOPATHY
     Dosage: UNK
     Route: 042

REACTIONS (6)
  - Stress cardiomyopathy [Recovering/Resolving]
  - Mitral valve incompetence [Recovered/Resolved]
  - Left ventricle outflow tract obstruction [Recovered/Resolved]
  - Pulmonary oedema [Recovered/Resolved]
  - Systolic anterior motion of mitral valve [Recovered/Resolved]
  - Cardiogenic shock [Recovered/Resolved]
